FAERS Safety Report 24090718 (Version 1)
Quarter: 2024Q3

REPORT INFORMATION
  Report Type: Spontaneous
  Country: GB (occurrence: GB)
  Receive Date: 20240715
  Receipt Date: 20240715
  Transmission Date: 20241016
  Serious: Yes (Disabling, Other)
  Sender: TEVA
  Company Number: None

PATIENT
  Age: 71 Year
  Sex: Male
  Weight: 70 kg

DRUGS (1)
  1. ATORVASTATIN [Suspect]
     Active Substance: ATORVASTATIN

REACTIONS (1)
  - Joint lock [Recovering/Resolving]

NARRATIVE: CASE EVENT DATE: 20220906
